FAERS Safety Report 7774342-6 (Version None)
Quarter: 2011Q3

REPORT INFORMATION
  Report Type: 
  Country: None (occurrence: None)
  Receive Date: 20110923
  Receipt Date: 20110919
  Transmission Date: 20111222
  Serious: Yes (Death)
  Sender: FDA-Public Use
  Company Number: PHHY2011MX83205

PATIENT
  Sex: Male

DRUGS (1)
  1. DIOVAN HCT [Suspect]
     Indication: HYPERTENSION
     Dosage: 01 DF (VALSARTAN 160 MG, HYDROCHLOROTHIAZIDE 12.5 MG), DAILY
     Dates: start: 20110701

REACTIONS (1)
  - RENAL IMPAIRMENT [None]
